FAERS Safety Report 21243943 (Version 1)
Quarter: 2022Q3

REPORT INFORMATION
  Report Type: Spontaneous
  Country: BR (occurrence: BR)
  Receive Date: 20220823
  Receipt Date: 20220823
  Transmission Date: 20221026
  Serious: Yes (Hospitalization, Other)
  Sender: FDA-Public Use
  Company Number: BR-PFIZER INC-PV202200046639

PATIENT
  Sex: Female
  Weight: 40 kg

DRUGS (16)
  1. XALKORI [Suspect]
     Active Substance: CRIZOTINIB
     Indication: Lung adenocarcinoma
     Dosage: 1 DF, DAILY, FOR A WEEK
  2. XALKORI [Suspect]
     Active Substance: CRIZOTINIB
     Dosage: 2 DF, DAILY
     Dates: start: 202202
  3. NUTREN 1.0 [Concomitant]
     Indication: Vitamin supplementation
     Dosage: UNK
  4. ATORVASTATIN [Concomitant]
     Active Substance: ATORVASTATIN
     Indication: Blood cholesterol
     Dosage: 1 DF, DAILY, AT NIGHT
  5. FUROSEMIDE [Concomitant]
     Active Substance: FUROSEMIDE
     Indication: Diuretic therapy
     Dosage: 1 DF, DAILY, IN THE MORNING
  6. NISTATIN [Concomitant]
     Active Substance: NYSTATIN
     Dosage: 10 ML, 4X/DAY MAKE MOUTHWASH AND THEN SWALLOW,
     Route: 048
  7. PANTOPRAZOLE [Concomitant]
     Active Substance: PANTOPRAZOLE
     Indication: Gastric disorder
     Dosage: 1 DF, 2X/DAY 1 CAPSULE IN THE MORNING AND 1 CAPSULE IN THE AFTERNOON,
  8. XARELTO [Concomitant]
     Active Substance: RIVAROXABAN
     Indication: Pulmonary embolism
     Dosage: 1 DF, 1X/DAY, AT 17:00
  9. XARELTO [Concomitant]
     Active Substance: RIVAROXABAN
     Indication: Thrombosis prophylaxis
  10. ESCITALOPRAM [Concomitant]
     Active Substance: ESCITALOPRAM OXALATE
     Indication: Insomnia
     Dosage: 1 DF, 1X/DAY, AT 11:00
  11. ESCITALOPRAM [Concomitant]
     Active Substance: ESCITALOPRAM OXALATE
     Indication: Anxiety
  12. DILTIAZEM [Concomitant]
     Active Substance: DILTIAZEM
     Dosage: UNK
  13. CLONAZEPAM [Concomitant]
     Active Substance: CLONAZEPAM
     Indication: Insomnia
     Dosage: UNK
  14. MIRTAZAPINE [Concomitant]
     Active Substance: MIRTAZAPINE
     Dosage: UNK
  15. LEVOTHYROXINE [Concomitant]
     Active Substance: LEVOTHYROXINE
     Dosage: UNK
  16. SACCHAROMYCES CEREVISIAE [Concomitant]
     Active Substance: SACCHAROMYCES CEREVISIAE
     Dosage: UNK

REACTIONS (20)
  - Constipation [Unknown]
  - Oesophageal candidiasis [Unknown]
  - Oesophagitis [Unknown]
  - Pulmonary embolism [Unknown]
  - Weight decreased [Unknown]
  - Nausea [Unknown]
  - Diarrhoea [Recovered/Resolved]
  - Blood pressure fluctuation [Unknown]
  - Odynophagia [Unknown]
  - Incorrect dose administered [Unknown]
  - Dyspepsia [Unknown]
  - Ageusia [Unknown]
  - Eating disorder [Unknown]
  - Dysgeusia [Unknown]
  - Nightmare [Unknown]
  - Agitation [Unknown]
  - Insomnia [Unknown]
  - Off label use [Unknown]
  - Blood cholesterol abnormal [Unknown]
  - Anxiety [Unknown]

NARRATIVE: CASE EVENT DATE: 20220505
